FAERS Safety Report 21649951 (Version 2)
Quarter: 2022Q4

REPORT INFORMATION
  Report Type: Spontaneous
  Country: IT (occurrence: None)
  Receive Date: 20221128
  Receipt Date: 20221206
  Transmission Date: 20230112
  Serious: Yes (Other)
  Sender: FDA-Public Use
  Company Number: IT-ROCHE-3225278

PATIENT
  Age: 73 Year
  Sex: Male

DRUGS (1)
  1. EMICIZUMAB [Suspect]
     Active Substance: EMICIZUMAB
     Indication: Factor VIII deficiency
     Dosage: 3 MG/KG P.C. AND AFTER 1.5 MG/KG P.C. ONCE/WEEK
     Route: 065
     Dates: end: 20221116

REACTIONS (3)
  - Haemorrhagic disorder [Unknown]
  - Angina pectoris [Recovering/Resolving]
  - COVID-19 [Unknown]

NARRATIVE: CASE EVENT DATE: 20221118
